FAERS Safety Report 7906604-3 (Version None)
Quarter: 2011Q4

REPORT INFORMATION
  Report Type: 
  Country: None (occurrence: None)
  Receive Date: 20111110
  Receipt Date: 20111102
  Transmission Date: 20120403
  Serious: Yes (Other)
  Sender: FDA-Public Use
  Company Number: RU-SANOFI-AVENTIS-2011SA065529

PATIENT
  Age: 73 Year
  Sex: Female

DRUGS (4)
  1. PLAVIX [Suspect]
     Indication: CORONARY ARTERIAL STENT INSERTION
     Route: 048
     Dates: start: 20100401
  2. SOTALOL HCL [Concomitant]
     Indication: ATRIAL FIBRILLATION
     Route: 048
  3. MONOCINQUE [Concomitant]
     Indication: ANGINA PECTORIS
     Route: 048
  4. PANANGIN [Concomitant]
     Indication: ANGINA PECTORIS
     Route: 048

REACTIONS (4)
  - CONDITION AGGRAVATED [None]
  - ATRIAL FIBRILLATION [None]
  - INCORRECT DRUG ADMINISTRATION DURATION [None]
  - ANGINA PECTORIS [None]
